FAERS Safety Report 10508470 (Version 2)
Quarter: 2016Q1

REPORT INFORMATION
  Report Type: Spontaneous
  Country: US (occurrence: US)
  Receive Date: 20141009
  Receipt Date: 20160115
  Transmission Date: 20160525
  Serious: No
  Sender: FDA-Public Use
  Company Number: US-ASTELLAS-2014US012598

PATIENT
  Sex: Male

DRUGS (1)
  1. MYRBETRIQ [Suspect]
     Active Substance: MIRABEGRON
     Indication: PRODUCT USED FOR UNKNOWN INDICATION
     Dosage: 25 MG, PER DAY
     Route: 065
     Dates: start: 2014

REACTIONS (5)
  - Drug ineffective [Unknown]
  - Urinary retention [Unknown]
  - Pollakiuria [Not Recovered/Not Resolved]
  - Chromaturia [Unknown]
  - Urine flow decreased [Unknown]
